FAERS Safety Report 16232082 (Version 2)
Quarter: 2019Q2

REPORT INFORMATION
  Report Type: Spontaneous
  Country: US (occurrence: US)
  Receive Date: 20190424
  Receipt Date: 20190510
  Transmission Date: 20190711
  Serious: Yes (Hospitalization)
  Sender: FDA-Public Use
  Company Number: US-ASTRAZENECA-2019SE59281

PATIENT
  Sex: Female

DRUGS (2)
  1. INSULIN [Concomitant]
     Active Substance: INSULIN NOS
     Indication: DIABETES MELLITUS
     Dosage: TWO TIMES A DAY
  2. BYDUREON [Suspect]
     Active Substance: EXENATIDE
     Indication: DIABETES MELLITUS
     Route: 058
     Dates: start: 201810

REACTIONS (5)
  - Nervousness [Unknown]
  - Product dose omission [Unknown]
  - Stress [Unknown]
  - Spider vein [Unknown]
  - Coronary artery occlusion [Unknown]

NARRATIVE: CASE EVENT DATE: 201903
